FAERS Safety Report 5708235-2 (Version None)
Quarter: 2008Q2

REPORT INFORMATION
  Report Type: 
  Country: None (occurrence: None)
  Receive Date: 20080417
  Receipt Date: 20080402
  Transmission Date: 20081010
  Serious: Yes (Hospitalization)
  Sender: FDA-Public Use
  Company Number: JP-AVENTIS-200811479EU

PATIENT
  Age: 73 Year
  Sex: Female

DRUGS (8)
  1. LANSOPRAZOLE [Suspect]
     Route: 048
     Dates: start: 20080206, end: 20080212
  2. LANSOPRAZOLE [Suspect]
     Indication: DUODENAL ULCER
     Route: 048
     Dates: start: 20080206, end: 20080212
  3. AMARYL [Suspect]
     Indication: TYPE 2 DIABETES MELLITUS
     Route: 048
     Dates: start: 20080205, end: 20080207
  4. AMARYL [Suspect]
     Route: 048
     Dates: start: 20080212
  5. CLARYTHROMYCIN [Suspect]
     Route: 048
     Dates: start: 20080206, end: 20080212
  6. CLARYTHROMYCIN [Suspect]
     Indication: DUODENAL ULCER
     Route: 048
     Dates: start: 20080206, end: 20080212
  7. AMOXICILLIN [Suspect]
     Route: 048
     Dates: start: 20080206, end: 20080212
  8. AMOXICILLIN [Suspect]
     Indication: DUODENAL ULCER
     Route: 048
     Dates: start: 20080206, end: 20080212

REACTIONS (2)
  - DRUG INTERACTION [None]
  - HYPOGLYCAEMIA [None]
